FAERS Safety Report 10050633 (Version 1)
Quarter: 2014Q2

REPORT INFORMATION
  Report Type: Spontaneous
  Country: US (occurrence: US)
  Receive Date: 20140401
  Receipt Date: 20140401
  Transmission Date: 20141212
  Serious: No
  Sender: FDA-Public Use
  Company Number: US-ASTRAZENECA-2013SE58179

PATIENT
  Age: 74 Year
  Sex: Male
  Weight: 77.1 kg

DRUGS (18)
  1. NEXIUM [Suspect]
     Indication: GASTROOESOPHAGEAL REFLUX DISEASE
     Dosage: UNKNOWN DAILY
     Route: 048
     Dates: start: 2007, end: 2009
  2. NEXIUM [Suspect]
     Indication: ILL-DEFINED DISORDER
     Dosage: UNKNOWN DAILY
     Route: 048
     Dates: start: 2007, end: 2009
  3. NEXIUM [Suspect]
     Indication: GASTROOESOPHAGEAL REFLUX DISEASE
     Route: 048
     Dates: start: 20130610
  4. NEXIUM [Suspect]
     Indication: ILL-DEFINED DISORDER
     Route: 048
     Dates: start: 20130610
  5. NEXIUM [Suspect]
     Indication: GASTROOESOPHAGEAL REFLUX DISEASE
     Dosage: UNKNOWN EVERY OTHER DAY
     Route: 048
  6. NEXIUM [Suspect]
     Indication: ILL-DEFINED DISORDER
     Dosage: UNKNOWN EVERY OTHER DAY
     Route: 048
  7. METOPROLOL [Suspect]
     Indication: HEART RATE ABNORMAL
     Route: 065
     Dates: start: 2006
  8. METOPROLOL [Suspect]
     Indication: BLOOD PRESSURE
     Route: 065
     Dates: start: 2006
  9. PRILOSEC OTC [Suspect]
     Indication: GASTROOESOPHAGEAL REFLUX DISEASE
     Dosage: DAILY
     Route: 048
     Dates: start: 2009, end: 20130609
  10. PRILOSEC OTC [Suspect]
     Indication: GASTROOESOPHAGEAL REFLUX DISEASE
     Dosage: UNKNOWN TWICE DAILY
     Route: 048
  11. SPECTRUM SILVER MULTIVITAMIN [Concomitant]
     Indication: BLOOD COUNT ABNORMAL
     Dosage: 2 TABS DAILY
     Route: 048
     Dates: start: 2010
  12. PROGRAF [Concomitant]
     Indication: KIDNEY TRANSPLANT REJECTION
  13. CLONIDINE [Concomitant]
     Indication: BLOOD PRESSURE
  14. DILTIAZEM ER [Concomitant]
     Indication: RENAL IMPAIRMENT
  15. PRAVASTATIN [Concomitant]
     Indication: BLOOD CHOLESTEROL
  16. MAGNESIUM [Concomitant]
     Indication: MAGNESIUM DEFICIENCY
  17. TYLENOL [Concomitant]
     Indication: ARTHRITIS
  18. ASPIRIN [Concomitant]
     Indication: CARDIAC DISORDER

REACTIONS (6)
  - Blood count abnormal [Unknown]
  - Hyperchlorhydria [Unknown]
  - Dyspepsia [Unknown]
  - Abdominal discomfort [Not Recovered/Not Resolved]
  - Intentional product misuse [Unknown]
  - Drug ineffective [Unknown]
